FAERS Safety Report 9776344 (Version 2)
Quarter: 2014Q1

REPORT INFORMATION
  Report Type: Spontaneous
  Country: IT (occurrence: IT)
  Receive Date: 20131220
  Receipt Date: 20140124
  Transmission Date: 20141002
  Serious: Yes (Hospitalization)
  Sender: FDA-Public Use
  Company Number: PHHY2013IT146558

PATIENT
  Sex: Male

DRUGS (5)
  1. CARVEDILOL [Suspect]
     Indication: HYPERTENSION
     Dosage: 3.13 MG, QD
     Route: 048
     Dates: start: 20131005, end: 20131007
  2. MIRAPEXIN [Concomitant]
     Route: 048
  3. MADOPAR [Concomitant]
     Route: 048
  4. TRITTICO [Concomitant]
     Route: 048
  5. CARDIOASPIRIN [Concomitant]
     Route: 048

REACTIONS (2)
  - Cold sweat [Recovered/Resolved]
  - Syncope [Recovered/Resolved]
